FAERS Safety Report 9152331 (Version 1)
Quarter: 2013Q1

REPORT INFORMATION
  Report Type: Spontaneous
  Country: DE (occurrence: DE)
  Receive Date: 20130308
  Receipt Date: 20130308
  Transmission Date: 20140127
  Serious: Yes (Hospitalization, Other)
  Sender: FDA-Public Use
  Company Number: DE-ELI_LILLY_AND_COMPANY-DE201302009604

PATIENT
  Age: 79 Year
  Sex: Female

DRUGS (8)
  1. ZYPREXA [Suspect]
     Indication: DEPRESSION
     Dosage: 7.5 MG, UNKNOWN
     Route: 048
     Dates: start: 20120813, end: 20120906
  2. ZYPREXA [Suspect]
     Dosage: 2.5 MG, UNKNOWN
     Dates: start: 20120907, end: 20120911
  3. CYMBALTA [Concomitant]
     Dosage: 30 MG, UNKNOWN
     Dates: start: 20120813, end: 20120815
  4. CYMBALTA [Concomitant]
     Dosage: 60 MG, UNKNOWN
     Dates: start: 20120816, end: 20120820
  5. CYMBALTA [Concomitant]
     Dosage: 90 MG, UNKNOWN
     Dates: start: 20120821
  6. MIRTAZAPIN [Concomitant]
     Dosage: 7.5 MG, UNKNOWN
     Dates: start: 20120812, end: 20120826
  7. MIRTAZAPIN [Concomitant]
     Dosage: 15 MG, UNKNOWN
     Dates: start: 20120827, end: 20120904
  8. MIRTAZAPIN [Concomitant]
     Dosage: 7.5 MG, UNKNOWN
     Dates: start: 20120905

REACTIONS (4)
  - Eyelid oedema [Recovered/Resolved]
  - Oedema peripheral [Recovered/Resolved]
  - Mobility decreased [Unknown]
  - Visual acuity reduced [Unknown]
